FAERS Safety Report 25431564 (Version 2)
Quarter: 2025Q2

REPORT INFORMATION
  Report Type: Spontaneous
  Country: US (occurrence: US)
  Receive Date: 20250613
  Receipt Date: 20250621
  Transmission Date: 20250716
  Serious: Yes (Other)
  Sender: ACCORD
  Company Number: US-Accord-489645

PATIENT
  Age: 22 Year
  Sex: Male
  Weight: 94 kg

DRUGS (4)
  1. CISPLATIN [Suspect]
     Active Substance: CISPLATIN
     Indication: Malignant mediastinal neoplasm
  2. ETOPOSIDE [Suspect]
     Active Substance: ETOPOSIDE
     Indication: Malignant mediastinal neoplasm
  3. IFOSFAMIDE [Suspect]
     Active Substance: IFOSFAMIDE
     Indication: Malignant mediastinal neoplasm
  4. PEGFILGRASTIM [Concomitant]
     Active Substance: PEGFILGRASTIM
     Indication: Infection prophylaxis

REACTIONS (6)
  - Stomatitis [Unknown]
  - Dehydration [Unknown]
  - Off label use [Unknown]
  - Syncope [Unknown]
  - Pancytopenia [Unknown]
  - Febrile neutropenia [Unknown]
